FAERS Safety Report 8184555-X (Version None)
Quarter: 2012Q1

REPORT INFORMATION
  Report Type: 
  Country: None (occurrence: None)
  Receive Date: 20120305
  Receipt Date: 20120221
  Transmission Date: 20120608
  Serious: Yes (Hospitalization, Disabling, Other)
  Sender: FDA-Public Use
  Company Number: US-MERCK-1201USA04018

PATIENT
  Age: 47 Year
  Sex: Female

DRUGS (7)
  1. FOSAMAX [Suspect]
     Route: 048
     Dates: start: 20010401, end: 20030101
  2. FOSAMAX [Suspect]
     Route: 048
     Dates: start: 20010401, end: 20030101
  3. CALCIUM (UNSPECIFIED) AND MAGNESIUM (UNSPECIFIED) [Concomitant]
     Route: 065
     Dates: start: 19950101
  4. FOSAMAX [Suspect]
     Indication: OSTEOPENIA
     Route: 048
     Dates: start: 19950101, end: 20010401
  5. ACTONEL [Suspect]
     Indication: OSTEOPOROSIS
     Route: 048
     Dates: start: 20030501, end: 20090101
  6. ACTONEL [Suspect]
     Indication: OSTEOPENIA
     Route: 048
     Dates: start: 20030501, end: 20090101
  7. FOSAMAX [Suspect]
     Indication: OSTEOPOROSIS
     Route: 048
     Dates: start: 19950101, end: 20010401

REACTIONS (10)
  - FEMUR FRACTURE [None]
  - DEPRESSION [None]
  - BUNDLE BRANCH BLOCK LEFT [None]
  - ROTATOR CUFF SYNDROME [None]
  - RADIUS FRACTURE [None]
  - OSTEOMALACIA [None]
  - VITAMIN D DEFICIENCY [None]
  - FALL [None]
  - CALCIUM DEFICIENCY [None]
  - LOW TURNOVER OSTEOPATHY [None]
